FAERS Safety Report 9445936 (Version 1)
Quarter: 2013Q3

REPORT INFORMATION
  Report Type: Spontaneous
  Country: PT (occurrence: PT)
  Receive Date: 20130807
  Receipt Date: 20130807
  Transmission Date: 20140515
  Serious: Yes (Other)
  Sender: FDA-Public Use
  Company Number: PT-B.I. PHARMACEUTICALS,INC./RIDGEFIELD-2013-BI-23370GD

PATIENT
  Age: 83 Year
  Sex: Female

DRUGS (4)
  1. DABIGATRAN [Suspect]
     Route: 048
  2. AMIODARONE [Concomitant]
  3. METFORMIN [Concomitant]
  4. MULTIPLE ANALGESIA [Concomitant]
     Indication: ANALGESIC THERAPY

REACTIONS (9)
  - Haemorrhage [Recovered/Resolved]
  - Anaemia [Unknown]
  - Leukocytosis [Unknown]
  - Thrombocytopenia [Unknown]
  - Renal impairment [Unknown]
  - Fatigue [Unknown]
  - Haematochezia [Unknown]
  - Injection site bruising [Unknown]
  - Mouth haemorrhage [Recovered/Resolved]
